FAERS Safety Report 5726958-6 (Version None)
Quarter: 2008Q2

REPORT INFORMATION
  Report Type: 
  Country: None (occurrence: None)
  Receive Date: 20080501
  Receipt Date: 20070723
  Transmission Date: 20081010
  Serious: Yes (Other)
  Sender: FDA-Public Use
  Company Number: PHEH2007US03441

PATIENT
  Age: 54 Year
  Sex: Female

DRUGS (1)
  1. DIOVAN HCT [Suspect]
     Indication: HYPERTENSION
     Dosage: 80MG VAL/12.5MG HCT, QD
     Dates: start: 20041101

REACTIONS (5)
  - HYPERSENSITIVITY [None]
  - LOSS OF CONSCIOUSNESS [None]
  - OESOPHAGEAL SPASM [None]
  - SWELLING [None]
  - URTICARIA [None]
